FAERS Safety Report 13034867 (Version 1)
Quarter: 2016Q4

REPORT INFORMATION
  Report Type: Spontaneous
  Country: JP (occurrence: JP)
  Receive Date: 20161216
  Receipt Date: 20161216
  Transmission Date: 20170207
  Serious: Yes (Death, Other)
  Sender: FDA-Public Use
  Company Number: JP-JNJFOC-20161213325

PATIENT

DRUGS (7)
  1. PEGINTERFERON ALFA-2B [Suspect]
     Active Substance: PEGINTERFERON ALFA-2B
     Indication: HEPATITIS C
     Dosage: PLANNED DURATION OF TREATMENT WAS 24 WEEKS
     Route: 065
  2. SIMEPREVIR [Suspect]
     Active Substance: SIMEPREVIR
     Indication: HEPATITIS C
     Dosage: PLANNED DURATION OF TREATMENT WAS 12 WEEKS
     Route: 065
  3. MYCOPHENOLATE MOFETIL. [Concomitant]
     Active Substance: MYCOPHENOLATE MOFETIL
     Route: 065
  4. CYCLOSPORINE. [Concomitant]
     Active Substance: CYCLOSPORINE
     Indication: IMMUNOSUPPRESSION
     Route: 065
  5. RIBAVIRIN. [Suspect]
     Active Substance: RIBAVIRIN
     Indication: HEPATITIS C
     Dosage: PLANNED DURATION OF TREATMENT WAS 24 WEEKS. DOSE WAS DEPENDING ON THE BODY WEIGHT (600-1000 MG)
     Route: 065
  6. TACROLIMUS. [Concomitant]
     Active Substance: TACROLIMUS
     Indication: IMMUNOSUPPRESSION
     Route: 065
  7. PEGINTERFERON ALFA-2A [Suspect]
     Active Substance: PEGINTERFERON ALFA-2A
     Indication: HEPATITIS C
     Dosage: PLANNED DURATION OF TREATMENT WAS 24 WEEKS
     Route: 065

REACTIONS (12)
  - Remission not achieved [Unknown]
  - Transplant dysfunction [Unknown]
  - Anaemia [Unknown]
  - Therapy non-responder [Unknown]
  - Product use issue [Unknown]
  - Renal failure [Unknown]
  - Pneumonia [Unknown]
  - Transplant failure [Fatal]
  - Off label use [Unknown]
  - Rash [Unknown]
  - Cytomegalovirus infection [Unknown]
  - Viral load increased [Unknown]
